FAERS Safety Report 24058678 (Version 5)
Quarter: 2025Q1

REPORT INFORMATION
  Report Type: Spontaneous
  Country: JP (occurrence: JP)
  Receive Date: 20240708
  Receipt Date: 20250325
  Transmission Date: 20250408
  Serious: Yes (Disabling, Other)
  Sender: UCB
  Company Number: JP-UCBJ-CD202402951UCBPHAPROD

PATIENT
  Age: 86 Year
  Sex: Female
  Weight: 47.8 kg

DRUGS (4)
  1. BIMZELX [Suspect]
     Active Substance: BIMEKIZUMAB-BKZX
     Indication: Psoriasis
     Dosage: 320 MILLIGRAM, EV 4 WEEKS
     Route: 058
     Dates: start: 20230719, end: 20240124
  2. BIMZELX [Suspect]
     Active Substance: BIMEKIZUMAB-BKZX
     Indication: Erythrodermic psoriasis
     Dosage: 320 MILLIGRAM, EV 8 WEEKS
     Route: 058
  3. BIMZELX [Suspect]
     Active Substance: BIMEKIZUMAB-BKZX
     Indication: Psoriatic arthropathy
     Dosage: 320 MILLIGRAM, EV 4 WEEKS
     Route: 058
     Dates: start: 20240424, end: 20240527
  4. PREDNISOLONE [Concomitant]
     Active Substance: PREDNISOLONE
     Indication: Product used for unknown indication

REACTIONS (3)
  - Drug-induced liver injury [Recovered/Resolved]
  - Psoriatic arthropathy [Recovering/Resolving]
  - Psoriasis [Recovered/Resolved]

NARRATIVE: CASE EVENT DATE: 20240327
